FAERS Safety Report 20638307 (Version 3)
Quarter: 2022Q2

REPORT INFORMATION
  Report Type: Report from Study
  Country: US (occurrence: US)
  Receive Date: 20220325
  Receipt Date: 20220418
  Transmission Date: 20220721
  Serious: Yes (Hospitalization)
  Sender: FDA-Public Use
  Company Number: US-G1-000505

PATIENT
  Age: 70 Year
  Sex: Female
  Weight: 56.7 kg

DRUGS (23)
  1. TRILACICLIB [Suspect]
     Active Substance: TRILACICLIB
     Indication: Myelosuppression
     Dosage: TIME INTERVAL: CYCLICAL; 240 MG/M2 ON DAY 1 AND DAY 8 OF EACH 21-DAY CYCLE
     Route: 041
     Dates: start: 20220119, end: 20220309
  2. CARBOPLATIN [Suspect]
     Active Substance: CARBOPLATIN
     Indication: Triple negative breast cancer
     Dosage: TIME INTERVAL: CYCLICAL; AUC 2, ON DAY 1 AND DAY 8 OF EACH 21-DAY CYCLE
     Route: 041
     Dates: start: 20220119, end: 20220119
  3. CARBOPLATIN [Suspect]
     Active Substance: CARBOPLATIN
     Indication: Triple negative breast cancer
     Dosage: TIME INTERVAL: CYCLICAL; AUC 2, ON DAY 1 AND DAY 8 OF EACH 21-DAY CYCLE
     Route: 041
     Dates: start: 20220126, end: 20220126
  4. CARBOPLATIN [Suspect]
     Active Substance: CARBOPLATIN
     Indication: Triple negative breast cancer
     Dosage: TIME INTERVAL: CYCLICAL; AUC 2, ON DAY 1 AND DAY 8 OF EACH 21-DAY CYCLE
     Route: 041
     Dates: start: 20220209, end: 20220209
  5. CARBOPLATIN [Suspect]
     Active Substance: CARBOPLATIN
     Indication: Triple negative breast cancer
     Dosage: TIME INTERVAL: CYCLICAL; AUC 2, ON DAY 1 AND DAY 8 OF EACH 21-DAY CYCLE
     Route: 041
     Dates: start: 20220216, end: 20220216
  6. CARBOPLATIN [Suspect]
     Active Substance: CARBOPLATIN
     Indication: Triple negative breast cancer
     Dosage: TIME INTERVAL: CYCLICAL; AUC 2, ON DAY 1 AND DAY 8 OF EACH 21-DAY CYCLE
     Route: 041
     Dates: start: 20220302, end: 20220302
  7. CARBOPLATIN [Suspect]
     Active Substance: CARBOPLATIN
     Indication: Triple negative breast cancer
     Dosage: TIME INTERVAL: CYCLICAL; AUC 2, ON DAY 1 AND DAY 8 OF EACH 21-DAY CYCLE
     Route: 041
     Dates: start: 20220309, end: 20220309
  8. GEMCITABINE [Suspect]
     Active Substance: GEMCITABINE
     Indication: Triple negative breast cancer
     Dosage: 1000 MG/M2 ON DAY 1 AND DAY 8 OF EACH 21-DAY CYCLE
     Route: 041
     Dates: start: 20220119, end: 20220309
  9. 2650411 (GLOBALC3Sep21): Eliquis [Concomitant]
     Indication: Thrombosis
     Route: 048
     Dates: start: 20211220
  10. 1329023 (GLOBALC3Sep21): Zyrtec [Concomitant]
     Indication: Rhinitis allergic
     Dosage: TIME INTERVAL: AS NECESSARY
     Route: 048
     Dates: start: 20190523
  11. 2327798 (GLOBALC3Sep21): Citalopram [Concomitant]
     Indication: Depression
     Route: 048
     Dates: start: 20211203, end: 20220302
  12. 1325316 (GLOBALC3Sep21): Gabapentin [Concomitant]
     Indication: Neuropathy peripheral
     Route: 048
     Dates: start: 20201111
  13. 1325615 (GLOBALC3Sep21): Crestor [Concomitant]
     Indication: Hyperlipidaemia
     Route: 048
     Dates: start: 20190612
  14. 2787847 (GLOBALC3Sep21): Oxycodone [Concomitant]
     Indication: Back pain
     Dosage: TIME INTERVAL: AS NECESSARY
     Route: 048
     Dates: start: 20211125
  15. 1327825 (GLOBALC3Sep21): Polyethylene Glycol [Concomitant]
     Indication: Constipation
     Route: 048
     Dates: start: 20220209, end: 20220302
  16. 1608866 (GLOBALC3Sep21): Carvedilol [Concomitant]
     Indication: Hypertension
     Route: 048
     Dates: start: 20210924
  17. 4411540 (GLOBALC3Sep21): Klor-Con [Concomitant]
     Indication: Hypokalaemia
     Route: 048
     Dates: start: 20210924
  18. 1328870 (GLOBALC3Sep21): Vitamin D [Concomitant]
     Indication: Nutritional supplementation
     Dosage: 2000
     Route: 048
     Dates: start: 20190101
  19. 2382297 (GLOBALC3Sep21): Multi Vitamin [Concomitant]
     Indication: Routine health maintenance
     Dosage: 1 TABLET
     Route: 048
     Dates: start: 20190101
  20. 1265833 (GLOBALC3Sep21): Elderberry [Concomitant]
     Indication: Routine health maintenance
     Dosage: 1 TABLET
     Route: 048
     Dates: start: 20220101
  21. 1229812 (GLOBALC3Sep21): Colace [Concomitant]
     Indication: Constipation
     Dosage: 1 TABLET
     Route: 048
     Dates: start: 20220302
  22. 1262443 (GLOBALC3Sep21): Lasix [Concomitant]
     Indication: Diuretic therapy
     Route: 048
     Dates: start: 20220101
  23. 4451533 (GLOBALC3Sep21): Ziextenzo [Concomitant]
     Indication: Neutrophil count decreased
     Dates: start: 20220310, end: 20220310

REACTIONS (1)
  - Cardiac failure [Recovered/Resolved]

NARRATIVE: CASE EVENT DATE: 20220314
